FAERS Safety Report 8234149-2 (Version None)
Quarter: 2012Q1

REPORT INFORMATION
  Report Type: 
  Country: None (occurrence: None)
  Receive Date: 20120326
  Receipt Date: 20120314
  Transmission Date: 20120608
  Serious: Yes (Hospitalization, Other)
  Sender: FDA-Public Use
  Company Number: US-MYLANLABS-2012S1006283

PATIENT
  Sex: Male
  Weight: 79.83 kg

DRUGS (35)
  1. DIGOXIN [Suspect]
     Route: 048
     Dates: start: 20050608, end: 20081114
  2. COREG [Concomitant]
  3. CATAFLAM /00372302/ [Concomitant]
  4. FOLIC ACID [Concomitant]
  5. GINKO BILOBA [Concomitant]
  6. CLEOCIN HYDROCHLORIDE [Concomitant]
  7. CO ENZYM Q10 [Concomitant]
  8. DINTAXIN [Concomitant]
  9. NORVASC [Concomitant]
  10. DICLOFENAC SODIUM [Concomitant]
  11. ZOLOFT [Concomitant]
  12. GLUCOSAMIN CHONDROITIN /01430901/ [Concomitant]
  13. PROSCAR [Concomitant]
  14. ASPIRIN [Concomitant]
  15. ASCORBIC ACID [Concomitant]
  16. SAW PALMETTO [Concomitant]
  17. MAGNESIUM SULFATE [Concomitant]
  18. ZINC SULFATE [Concomitant]
  19. POTASSIUM [Concomitant]
     Dosage: 1-1/2 DAILY
  20. LIPITOR [Concomitant]
  21. LORTAB [Concomitant]
  22. PRAVACHOL [Concomitant]
  23. CHLORTHALIDONE [Concomitant]
  24. LORAZEPAM [Concomitant]
  25. CALCIUM CARBONATE [Concomitant]
  26. PLAVIX [Concomitant]
  27. INDOCIN [Concomitant]
     Dosage: X 5 DAYS - THEN BID X 5 DAYS, THEN DAILY X5 DAYS, THEN DISCONTINUE
  28. IBUPROFEN [Concomitant]
  29. FISH OIL [Concomitant]
  30. VITAMIN E [Concomitant]
  31. HYTRIN [Concomitant]
  32. ALTACE [Concomitant]
  33. MULTI-VITAMINS [Concomitant]
  34. SYNTHROID [Concomitant]
  35. ZANTAC [Concomitant]

REACTIONS (45)
  - ACUTE MYOCARDIAL INFARCTION [None]
  - ANGINA UNSTABLE [None]
  - CORONARY ARTERY DISEASE [None]
  - CORONARY ANGIOPLASTY [None]
  - ECHOCARDIOGRAM ABNORMAL [None]
  - IMPLANTABLE DEFIBRILLATOR INSERTION [None]
  - ARTERIAL OCCLUSIVE DISEASE [None]
  - ARTERIOSCLEROSIS [None]
  - DEVICE LEAD DAMAGE [None]
  - GOUT [None]
  - DEVICE STIMULATION ISSUE [None]
  - MITRAL VALVE INCOMPETENCE [None]
  - DEVICE MALFUNCTION [None]
  - OEDEMA PERIPHERAL [None]
  - ORTHOSTATIC HYPOTENSION [None]
  - ATRIOVENTRICULAR BLOCK FIRST DEGREE [None]
  - CARDIAC FAILURE CONGESTIVE [None]
  - ASTHENIA [None]
  - BRADYCARDIA [None]
  - FLUID OVERLOAD [None]
  - PALPITATIONS [None]
  - SYNCOPE [None]
  - CHEST DISCOMFORT [None]
  - IN-STENT CORONARY ARTERY RESTENOSIS [None]
  - NAUSEA [None]
  - SINUS BRADYCARDIA [None]
  - DYSPNOEA [None]
  - CHEST PAIN [None]
  - ULTRASOUND SCAN ABNORMAL [None]
  - MYOCARDIAL ISCHAEMIA [None]
  - VENTRICULAR TACHYCARDIA [None]
  - ABDOMINAL PAIN UPPER [None]
  - BUNDLE BRANCH BLOCK RIGHT [None]
  - CARDIAC MURMUR [None]
  - CLONUS [None]
  - COLD SWEAT [None]
  - TROPONIN INCREASED [None]
  - UPPER RESPIRATORY TRACT INFECTION [None]
  - ELECTROCARDIOGRAM ABNORMAL [None]
  - SUPRAVENTRICULAR EXTRASYSTOLES [None]
  - CATHETERISATION CARDIAC ABNORMAL [None]
  - CORONARY ARTERIAL STENT INSERTION [None]
  - HYPERLIPIDAEMIA [None]
  - PRESYNCOPE [None]
  - EJECTION FRACTION DECREASED [None]
